FAERS Safety Report 5783069-1 (Version None)
Quarter: 2008Q2

REPORT INFORMATION
  Report Type: 
  Country: None (occurrence: None)
  Receive Date: 20080624
  Receipt Date: 20080619
  Transmission Date: 20081010
  Serious: Yes (Hospitalization)
  Sender: FDA-Public Use
  Company Number: US-ASTRAZENECA-2007UW24896

PATIENT
  Age: 47 Year
  Sex: Female
  Weight: 75.9 kg

DRUGS (3)
  1. SEROQUEL [Suspect]
     Indication: DEPRESSION
     Route: 048
     Dates: start: 20020101, end: 20030101
  2. PROZAC [Concomitant]
  3. AMITRIPTYLINE HCL [Concomitant]

REACTIONS (3)
  - CHEST PAIN [None]
  - DIABETES MELLITUS [None]
  - KNEE ARTHROPLASTY [None]
